FAERS Safety Report 7235351-9 (Version None)
Quarter: 2011Q1

REPORT INFORMATION
  Report Type: 
  Country: None (occurrence: None)
  Receive Date: 20110111
  Receipt Date: 20101229
  Transmission Date: 20110831
  Serious: Yes (Death)
  Sender: FDA-Public Use
  Company Number: 2010P1002928

PATIENT
  Age: 55 Year
  Sex: Male
  Weight: 70.7611 kg

DRUGS (8)
  1. CELEBREX [Concomitant]
  2. FENTANYL [Suspect]
     Indication: BACK PAIN
     Dosage: 50 MCG;Q3D;TDER
     Route: 062
     Dates: start: 20081113
  3. FENTANYL [Suspect]
     Indication: NECK PAIN
     Dosage: 50 MCG;Q3D;TDER
     Route: 062
     Dates: start: 20081113
  4. ZOLOFT [Concomitant]
  5. PREDNISONE [Concomitant]
  6. LYRICA [Concomitant]
  7. CLARITIN [Concomitant]
  8. FLONASE [Concomitant]

REACTIONS (4)
  - TOXICITY TO VARIOUS AGENTS [None]
  - CORONARY ARTERY DISEASE [None]
  - DRUG SCREEN POSITIVE [None]
  - EMPHYSEMA [None]
